FAERS Safety Report 7241525-3 (Version None)
Quarter: 2011Q1

REPORT INFORMATION
  Report Type: 
  Country: None (occurrence: None)
  Receive Date: 20110119
  Receipt Date: 20110119
  Transmission Date: 20110831
  Serious: Yes (Other)
  Sender: FDA-Public Use
  Company Number: None

PATIENT
  Age: 48 Year
  Sex: Female
  Weight: 70.3075 kg

DRUGS (1)
  1. OXYCONTIN [Suspect]
     Dosage: TWICE DAILY PO
     Route: 048

REACTIONS (5)
  - MEDICATION RESIDUE [None]
  - NAUSEA [None]
  - HOT FLUSH [None]
  - DRUG EFFECT DECREASED [None]
  - PRODUCT FORMULATION ISSUE [None]
